FAERS Safety Report 21045246 (Version 11)
Quarter: 2023Q2

REPORT INFORMATION
  Report Type: Spontaneous
  Country: US (occurrence: US)
  Receive Date: 20220705
  Receipt Date: 20230518
  Transmission Date: 20230721
  Serious: Yes (Other)
  Sender: FDA-Public Use
  Company Number: US-Blueprint Medicines Corporation-SP-US-2022-002078

PATIENT
  Age: 66 Year
  Sex: Female

DRUGS (8)
  1. AYVAKIT [Suspect]
     Active Substance: AVAPRITINIB
     Indication: Systemic mastocytosis
     Route: 048
     Dates: start: 20180401
  2. AYVAKIT [Suspect]
     Active Substance: AVAPRITINIB
     Route: 048
     Dates: start: 20180401
  3. AYVAKIT [Suspect]
     Active Substance: AVAPRITINIB
     Route: 048
     Dates: start: 20180401
  4. AYVAKIT [Suspect]
     Active Substance: AVAPRITINIB
     Route: 048
     Dates: start: 20180401
  5. AYVAKIT [Suspect]
     Active Substance: AVAPRITINIB
     Route: 048
     Dates: start: 20180401
  6. AYVAKIT [Suspect]
     Active Substance: AVAPRITINIB
     Route: 065
  7. ARANESP [Suspect]
     Active Substance: DARBEPOETIN ALFA
     Indication: Red blood cell count decreased
  8. ARANESP [Suspect]
     Active Substance: DARBEPOETIN ALFA
     Indication: Platelet count decreased

REACTIONS (35)
  - Depressed level of consciousness [Unknown]
  - Myeloproliferative neoplasm [Not Recovered/Not Resolved]
  - Surgery [Not Recovered/Not Resolved]
  - Anaphylactic reaction [Unknown]
  - Malaise [Unknown]
  - COVID-19 [Unknown]
  - Drug ineffective [Unknown]
  - Disturbance in attention [Not Recovered/Not Resolved]
  - Abdominal distension [Unknown]
  - Blood test abnormal [Unknown]
  - Brain fog [Not Recovered/Not Resolved]
  - Eating disorder [Not Recovered/Not Resolved]
  - Weight decreased [Unknown]
  - Thinking abnormal [Unknown]
  - Hypersomnia [Unknown]
  - Memory impairment [Not Recovered/Not Resolved]
  - Fatigue [Not Recovered/Not Resolved]
  - Decreased appetite [Not Recovered/Not Resolved]
  - Anaemia [Not Recovered/Not Resolved]
  - Red blood cell count decreased [Not Recovered/Not Resolved]
  - Abdominal pain upper [Unknown]
  - Dizziness [Unknown]
  - Platelet count decreased [Not Recovered/Not Resolved]
  - Nausea [Not Recovered/Not Resolved]
  - Food allergy [Not Recovered/Not Resolved]
  - Disease progression [Unknown]
  - Gastric disorder [Unknown]
  - Hereditary alpha tryptasaemia [Not Recovered/Not Resolved]
  - Tryptase increased [Not Recovered/Not Resolved]
  - Product dose omission issue [Unknown]
  - Disease susceptibility [Not Recovered/Not Resolved]
  - Hepatomegaly [Unknown]
  - Pain [Unknown]
  - Post-acute COVID-19 syndrome [Unknown]
  - Splenomegaly [Not Recovered/Not Resolved]

NARRATIVE: CASE EVENT DATE: 20180401
